FAERS Safety Report 6979237-3 (Version None)
Quarter: 2010Q3

REPORT INFORMATION
  Report Type: 
  Country: None (occurrence: None)
  Receive Date: 20100908
  Receipt Date: 20100831
  Transmission Date: 20110219
  Serious: Yes (Hospitalization, Other)
  Sender: FDA-Public Use
  Company Number: 2009-198049-NL

PATIENT
  Age: 29 Year
  Sex: Female
  Weight: 74.8435 kg

DRUGS (9)
  1. NUVARING [Suspect]
     Indication: CONTRACEPTION
     Dates: start: 20070228, end: 20070701
  2. IUD [Suspect]
     Indication: PRODUCT USED FOR UNKNOWN INDICATION
  3. TYLENOL [Concomitant]
  4. IMITREX [Concomitant]
  5. ROBITUSSIN [Concomitant]
  6. SUDAFED 12 HOUR [Concomitant]
  7. ALBUTEROL [Concomitant]
  8. PULMICORT [Concomitant]
  9. ADVAIR DISKUS 100/50 [Concomitant]

REACTIONS (49)
  - AFFECTIVE DISORDER [None]
  - AMNESIA [None]
  - ANAEMIA [None]
  - ASTHMA [None]
  - BACK PAIN [None]
  - BLOOD CHOLESTEROL INCREASED [None]
  - BLOOD PRESSURE SYSTOLIC DECREASED [None]
  - BLOOD TRIGLYCERIDES INCREASED [None]
  - CEREBROVASCULAR ACCIDENT [None]
  - CHOLECYSTITIS [None]
  - COGNITIVE DISORDER [None]
  - CONSTIPATION [None]
  - CONTUSION [None]
  - DEPRESSION [None]
  - DIPLOPIA [None]
  - DIZZINESS [None]
  - DYSSTASIA [None]
  - ENTEROCOCCUS TEST POSITIVE [None]
  - FALL [None]
  - FIBRIN D DIMER INCREASED [None]
  - HEAD INJURY [None]
  - HEADACHE [None]
  - HYPERCOAGULATION [None]
  - HYPOKALAEMIA [None]
  - HYPOTHYROIDISM [None]
  - INTERNATIONAL NORMALISED RATIO FLUCTUATION [None]
  - INTRACRANIAL VENOUS SINUS THROMBOSIS [None]
  - IRRITABLE BOWEL SYNDROME [None]
  - LOW DENSITY LIPOPROTEIN INCREASED [None]
  - MEMORY IMPAIRMENT [None]
  - MIGRAINE [None]
  - MIXED HYPERLIPIDAEMIA [None]
  - NAUSEA [None]
  - PAPILLOEDEMA [None]
  - PARAESTHESIA [None]
  - POLLAKIURIA [None]
  - PROTHROMBIN TIME PROLONGED [None]
  - RHEUMATOID ARTHRITIS [None]
  - ROSACEA [None]
  - SINUS DISORDER [None]
  - SINUSITIS [None]
  - STRESS [None]
  - THROMBOSIS [None]
  - THYROID DISORDER [None]
  - TINNITUS [None]
  - VERTIGO POSITIONAL [None]
  - VISION BLURRED [None]
  - VOMITING [None]
  - WEIGHT INCREASED [None]
